FAERS Safety Report 18777892 (Version 3)
Quarter: 2021Q3

REPORT INFORMATION
  Report Type: Spontaneous
  Country: US (occurrence: US)
  Receive Date: 20210122
  Receipt Date: 20210722
  Transmission Date: 20211014
  Serious: No
  Sender: FDA-Public Use
  Company Number: 2020SGN04353

PATIENT
  Sex: Female

DRUGS (4)
  1. CAPECITABINE. [Concomitant]
     Active Substance: CAPECITABINE
  2. HERCEPTIN [Suspect]
     Active Substance: TRASTUZUMAB
     Indication: BREAST CANCER FEMALE
     Dosage: UNK
  3. TUKYSA [Suspect]
     Active Substance: TUCATINIB
     Indication: BREAST CANCER FEMALE
     Dosage: UNK, BID
  4. TUKYSA [Suspect]
     Active Substance: TUCATINIB
     Dosage: UNK

REACTIONS (15)
  - Metastases to lung [Unknown]
  - Palmar-plantar erythrodysaesthesia syndrome [Unknown]
  - Abdominal discomfort [Unknown]
  - Fatigue [Unknown]
  - Diarrhoea [Unknown]
  - Extra dose administered [Unknown]
  - Gastrooesophageal reflux disease [Unknown]
  - Blood count abnormal [Unknown]
  - Unevaluable event [Unknown]
  - Pyrexia [Recovered/Resolved]
  - Dry skin [Unknown]
  - Dyspepsia [Unknown]
  - Rhinorrhoea [Unknown]
  - Red blood cell count decreased [Unknown]
  - Nausea [Unknown]
